FAERS Safety Report 19477702 (Version 1)
Quarter: 2021Q2

REPORT INFORMATION
  Report Type: Spontaneous
  Country: CA (occurrence: CA)
  Receive Date: 20210630
  Receipt Date: 20210630
  Transmission Date: 20210717
  Serious: No
  Sender: FDA-Public Use
  Company Number: None

PATIENT
  Age: 92 Year
  Sex: Female
  Weight: 54 kg

DRUGS (1)
  1. MIRTAZAPINE. [Suspect]
     Active Substance: MIRTAZAPINE
     Indication: SLEEP DISORDER
     Dosage: ?          QUANTITY:1/2 TABLET;?
     Route: 048
     Dates: start: 20210428, end: 20210514

REACTIONS (5)
  - Conjunctival disorder [None]
  - Vision blurred [None]
  - Eye movement disorder [None]
  - Visual impairment [None]
  - Diplopia [None]

NARRATIVE: CASE EVENT DATE: 20210514
